FAERS Safety Report 26157619 (Version 1)
Quarter: 2025Q4

REPORT INFORMATION
  Report Type: Report from Study
  Country: CA (occurrence: CA)
  Receive Date: 20251215
  Receipt Date: 20251215
  Transmission Date: 20260118
  Serious: Yes (Other)
  Sender: ALEXION PHARMACEUTICALS
  Company Number: CA-AstraZeneca-CH-00968962A

PATIENT
  Sex: Female

DRUGS (6)
  1. BENRALIZUMAB [Suspect]
     Active Substance: BENRALIZUMAB
     Indication: Asthma
     Dosage: 30 MILLIGRAM
  2. BENRALIZUMAB [Suspect]
     Active Substance: BENRALIZUMAB
  3. SYMBICORT [Concomitant]
     Active Substance: BUDESONIDE\FORMOTEROL FUMARATE DIHYDRATE
     Dosage: 200MCG 2 PUFFS BID, UP TO TID
     Route: 065
  4. ALVESCO [Concomitant]
     Active Substance: CICLESONIDE
     Dosage: 200MCG, 2 PUFFS BID
     Route: 065
  5. SPIRIVA RESPIMAT [Concomitant]
     Active Substance: TIOTROPIUM BROMIDE
     Dosage: 2.5MCG, 2 PUFFS OD
     Route: 065
  6. VENTOLIN [Concomitant]
     Active Substance: ALBUTEROL SULFATE
     Route: 065

REACTIONS (5)
  - Dizziness [Unknown]
  - Feeling abnormal [Unknown]
  - Hypotension [Unknown]
  - Loss of consciousness [Unknown]
  - Dyspnoea [Unknown]
